FAERS Safety Report 4915055-5 (Version None)
Quarter: 2006Q1

REPORT INFORMATION
  Report Type: 
  Country: None (occurrence: None)
  Receive Date: 20060217
  Receipt Date: 20060209
  Transmission Date: 20060701
  Serious: Yes (Death, Other)
  Sender: FDA-Public Use
  Company Number: PHNR2006AU00526

PATIENT
  Sex: Female

DRUGS (4)
  1. CYCLOSPORINE [Suspect]
     Indication: CROHN'S DISEASE
  2. CYTOTOX [Concomitant]
  3. PREDNISOLONE [Concomitant]
  4. IMURAN [Concomitant]

REACTIONS (6)
  - CHOLELITHIASIS [None]
  - GALLBLADDER OEDEMA [None]
  - INTESTINAL HAEMORRHAGE [None]
  - PANCYTOPENIA [None]
  - SEPSIS [None]
  - THROMBOCYTOPENIA [None]
